FAERS Safety Report 6308619-8 (Version None)
Quarter: 2009Q3

REPORT INFORMATION
  Report Type: 
  Country: None (occurrence: None)
  Receive Date: 20090813
  Receipt Date: 20090806
  Transmission Date: 20100115
  Serious: Yes (Other)
  Sender: FDA-Public Use
  Company Number: HQWYE270513AUG04

PATIENT
  Sex: Female

DRUGS (5)
  1. PREMPRO [Suspect]
     Indication: HORMONE REPLACEMENT THERAPY
     Dosage: UNKNOWN
     Route: 048
     Dates: start: 19860101, end: 19951016
  2. CYCRIN [Suspect]
  3. ESTRACE [Suspect]
  4. PREMARIN [Suspect]
  5. PREMARIN [Suspect]

REACTIONS (1)
  - BREAST CANCER METASTATIC [None]
